FAERS Safety Report 8153376-6 (Version None)
Quarter: 2012Q1

REPORT INFORMATION
  Report Type: 
  Country: None (occurrence: None)
  Receive Date: 20120221
  Receipt Date: 20120206
  Transmission Date: 20120608
  Serious: Yes (Death, Hospitalization)
  Sender: FDA-Public Use
  Company Number: KH-ROCHE-1031726

PATIENT
  Age: 28 Year
  Sex: Male
  Weight: 47 kg

DRUGS (1)
  1. TAMIFLU [Suspect]
     Indication: PRODUCT USED FOR UNKNOWN INDICATION
     Dates: start: 20050321, end: 20050322

REACTIONS (3)
  - PNEUMONIA [None]
  - INFLUENZA [None]
  - ACUTE RESPIRATORY DISTRESS SYNDROME [None]
